FAERS Safety Report 4322034-8 (Version None)
Quarter: 2004Q1

REPORT INFORMATION
  Report Type: 
  Country: None (occurrence: None)
  Receive Date: 20040319
  Receipt Date: 20040305
  Transmission Date: 20041129
  Serious: No
  Sender: FDA-Public Use
  Company Number: 2004-113628-NL

PATIENT
  Age: 43 Year
  Sex: Female

DRUGS (2)
  1. REMERON [Suspect]
  2. FUZEON [Suspect]

REACTIONS (1)
  - HEPATOSPLENOMEGALY [None]
